FAERS Safety Report 6718723-8 (Version None)
Quarter: 2010Q2

REPORT INFORMATION
  Report Type: 
  Country: None (occurrence: None)
  Receive Date: 20100505
  Receipt Date: 20100426
  Transmission Date: 20101027
  Serious: Yes (Other)
  Sender: FDA-Public Use
  Company Number: 8053230

PATIENT
  Age: 33 Year
  Sex: Male
  Weight: 70 kg

DRUGS (2)
  1. XOZAL (XOZAL) [Suspect]
     Indication: RHINITIS ALLERGIC
     Dosage: ( 1 TB PO ONCE DAILY DOSE FREQ: DAILY ORAL), (1 TB PO ONCE DAILY DOSE FREQ: DAILY ORAL)
     Route: 048
     Dates: start: 20081126, end: 20081128
  2. XOZAL (XOZAL) [Suspect]
     Indication: RHINITIS ALLERGIC
     Dosage: ( 1 TB PO ONCE DAILY DOSE FREQ: DAILY ORAL), (1 TB PO ONCE DAILY DOSE FREQ: DAILY ORAL)
     Route: 048
     Dates: start: 20081205, end: 20081206

REACTIONS (3)
  - IRIDOCYCLITIS [None]
  - VISION BLURRED [None]
  - VISUAL ACUITY REDUCED [None]
